FAERS Safety Report 12272085 (Version 1)
Quarter: 2016Q2

REPORT INFORMATION
  Report Type: Spontaneous
  Country: US (occurrence: US)
  Receive Date: 20160415
  Receipt Date: 20160415
  Transmission Date: 20160815
  Serious: No
  Sender: FDA-Public Use
  Company Number: US-FERRINGPH-2015FE04417

PATIENT
  Age: 81 Year
  Sex: Male

DRUGS (14)
  1. PLAVIX [Concomitant]
     Active Substance: CLOPIDOGREL BISULFATE
  2. FOLIC ACID. [Concomitant]
     Active Substance: FOLIC ACID
     Dosage: 1 MG, UNK
  3. RAPAFLO [Concomitant]
     Active Substance: SILODOSIN
     Dosage: 8 MG, UNK
  4. BUDESONIDE. [Concomitant]
     Active Substance: BUDESONIDE
  5. ASPIRIN                            /00002701/ [Concomitant]
     Active Substance: ASPIRIN
     Dosage: 81 MG, UNK
  6. FIRMAGON [Suspect]
     Active Substance: DEGARELIX ACETATE
     Indication: PROSTATE CANCER
     Dosage: UNK, EVERY 28 DAYS
     Route: 058
  7. METOPROLOL. [Concomitant]
     Active Substance: METOPROLOL
     Dosage: 50 MG, UNK
  8. ADVAIR HFA [Concomitant]
     Active Substance: FLUTICASONE PROPIONATE\SALMETEROL XINAFOATE
  9. VITAMINS WITH MINERALS [Concomitant]
     Active Substance: MINERALS\VITAMINS
  10. LANTUS [Concomitant]
     Active Substance: INSULIN GLARGINE
  11. NOVOLOG [Concomitant]
     Active Substance: INSULIN ASPART
  12. PROAIR HFA [Concomitant]
     Active Substance: ALBUTEROL SULFATE
  13. ATORVASTATIN [Concomitant]
     Active Substance: ATORVASTATIN
     Dosage: 40 MG, UNK
  14. NIASPAN [Concomitant]
     Active Substance: NIACIN
     Dosage: 500 MG, UNK

REACTIONS (4)
  - Arthralgia [Recovered/Resolved]
  - Decreased appetite [Recovered/Resolved]
  - Fatigue [Recovered/Resolved]
  - Asthenia [Recovered/Resolved]

NARRATIVE: CASE EVENT DATE: 2015
